FAERS Safety Report 5676082-6 (Version None)
Quarter: 2008Q1

REPORT INFORMATION
  Report Type: 
  Country: None (occurrence: None)
  Receive Date: 20080321
  Receipt Date: 20080317
  Transmission Date: 20080703
  Serious: Yes (Other)
  Sender: FDA-Public Use
  Company Number: DE-WYE-G01242708

PATIENT
  Sex: Male
  Weight: 60 kg

DRUGS (6)
  1. TORISEL [Suspect]
     Indication: METASTATIC RENAL CELL CARCINOMA
     Route: 042
     Dates: start: 20080221, end: 20080313
  2. CELLCEPT [Concomitant]
     Indication: PROPHYLAXIS AGAINST TRANSPLANT REJECTION
     Dosage: UNKNOWN
  3. RANITIDINE [Concomitant]
     Indication: PREMEDICATION
     Dosage: 1 AMPOULE (DOSE UNKNOWN)
     Route: 042
     Dates: start: 20080313, end: 20080313
  4. FENISTIL [Concomitant]
     Indication: PREMEDICATION
     Route: 042
     Dates: start: 20080307, end: 20080307
  5. FENISTIL [Concomitant]
     Route: 042
     Dates: start: 20080313, end: 20080313
  6. DEXAMETHASONE TAB [Concomitant]
     Indication: PREMEDICATION
     Route: 042
     Dates: start: 20080313, end: 20080313

REACTIONS (5)
  - BRONCHOSPASM [None]
  - CHEST PAIN [None]
  - DYSPNOEA [None]
  - FLUSHING [None]
  - HYPERSENSITIVITY [None]
